FAERS Safety Report 25035385 (Version 5)
Quarter: 2025Q3

REPORT INFORMATION
  Report Type: Spontaneous
  Country: US (occurrence: US)
  Receive Date: 20250304
  Receipt Date: 20250725
  Transmission Date: 20251021
  Serious: No
  Sender: BRISTOL-MYERS SQUIBB COMPANY
  Company Number: US-BRISTOL-MYERS SQUIBB COMPANY-2025-031173

PATIENT
  Age: 82 Year
  Sex: Female

DRUGS (1)
  1. REVLIMID [Suspect]
     Active Substance: LENALIDOMIDE
     Indication: Plasma cell myeloma
     Dosage: EVERY OTHER DAY FOR 21 DAYS ON AND 7 DAYS OFF
     Route: 048

REACTIONS (7)
  - Sciatica [Unknown]
  - Gait disturbance [Unknown]
  - Dysstasia [Unknown]
  - Off label use [Unknown]
  - Paraesthesia [Unknown]
  - Malaise [Unknown]
  - Peripheral swelling [Unknown]
